FAERS Safety Report 7600128-9 (Version None)
Quarter: 2011Q2

REPORT INFORMATION
  Report Type: 
  Country: None (occurrence: None)
  Receive Date: 20110629
  Receipt Date: 20110615
  Transmission Date: 20111010
  Serious: Yes (Other)
  Sender: FDA-Public Use
  Company Number: 20110284

PATIENT
  Age: 58 Year
  Sex: Female
  Weight: 51.7101 kg

DRUGS (6)
  1. DEXAMETHASONE SODIUM PHOSPHATE [Suspect]
     Indication: SWELLING
     Dosage: 4MG X 3 DOSES INTRAMUSCULAR
     Route: 030
     Dates: start: 20110201
  2. DEXAMETHASONE SODIUM PHOSPHATE [Suspect]
     Indication: PAIN
     Dosage: 4MG X 3 DOSES INTRAMUSCULAR
     Route: 030
     Dates: start: 20110201
  3. DEXAMETHASONE SODIUM PHOSPHATE [Suspect]
     Indication: SWELLING
     Dosage: 4MG X 3 DOSES INTRAMUSCULAR
     Route: 030
     Dates: start: 20110301
  4. DEXAMETHASONE SODIUM PHOSPHATE [Suspect]
     Indication: PAIN
     Dosage: 4MG X 3 DOSES INTRAMUSCULAR
     Route: 030
     Dates: start: 20110301
  5. CALCIUM CARBONATE [Concomitant]
  6. VITAMIN D [Concomitant]

REACTIONS (5)
  - NAUSEA [None]
  - HEADACHE [None]
  - EYE PAIN [None]
  - FACIAL PAIN [None]
  - DERMATITIS CONTACT [None]
